FAERS Safety Report 16428406 (Version 3)
Quarter: 2020Q2

REPORT INFORMATION
  Report Type: Other
  Country: US (occurrence: US)
  Receive Date: 20190613
  Receipt Date: 20200428
  Transmission Date: 20200713
  Serious: Yes (Death, Other)
  Sender: FDA-Public Use
  Company Number: US-AMAG PHARMACEUTICALS, INC.-AMAG201902763

PATIENT
  Age: 0 Year
  Weight: .55 kg

DRUGS (1)
  1. MAKENA [Suspect]
     Active Substance: HYDROXYPROGESTERONE CAPROATE
     Indication: FOETAL EXPOSURE DURING PREGNANCY
     Dosage: 250MG/ML, WEEKLY
     Route: 064
     Dates: start: 20190327, end: 20190509

REACTIONS (3)
  - Foetal hypokinesia [Fatal]
  - Umbilical cord abnormality [Unknown]
  - Stillbirth [Fatal]

NARRATIVE: CASE EVENT DATE: 2019
